FAERS Safety Report 19071424 (Version 1)
Quarter: 2021Q1

REPORT INFORMATION
  Report Type: Spontaneous
  Country: US (occurrence: US)
  Receive Date: 20210330
  Receipt Date: 20210330
  Transmission Date: 20210420
  Serious: No
  Sender: FDA-Public Use
  Company Number: US-SA-2021SA102207

PATIENT
  Age: 63 Year
  Sex: Female

DRUGS (3)
  1. INSULIN ASPART [Suspect]
     Active Substance: INSULIN ASPART
  2. OZEMPIC [Suspect]
     Active Substance: SEMAGLUTIDE
  3. DUPIXENT [Suspect]
     Active Substance: DUPILUMAB
     Indication: ASTHMA
     Dosage: 300 MG, QOW
     Dates: start: 202101

REACTIONS (10)
  - Abdominal pain upper [Unknown]
  - Injection site reaction [Unknown]
  - Hepatic steatosis [Unknown]
  - Myalgia [Unknown]
  - Blood pressure increased [Unknown]
  - Adverse drug reaction [Unknown]
  - Product use issue [Unknown]
  - Memory impairment [Unknown]
  - Injection site pain [Unknown]
  - Dental implantation [Unknown]

NARRATIVE: CASE EVENT DATE: 2021
